FAERS Safety Report 4449092-4 (Version None)
Quarter: 2004Q3

REPORT INFORMATION
  Report Type: 
  Country: None (occurrence: None)
  Receive Date: 20040910
  Receipt Date: 20040830
  Transmission Date: 20050211
  Serious: Yes (Hospitalization)
  Sender: FDA-Public Use
  Company Number: 2004AP04548

PATIENT

DRUGS (1)
  1. IRESSA [Suspect]
     Dates: start: 20040828

REACTIONS (1)
  - PLEURAL EFFUSION [None]
